FAERS Safety Report 7685259-X (Version None)
Quarter: 2011Q3

REPORT INFORMATION
  Report Type: 
  Country: None (occurrence: None)
  Receive Date: 20110816
  Receipt Date: 20110808
  Transmission Date: 20111222
  Serious: Yes (Hospitalization, Other)
  Sender: FDA-Public Use
  Company Number: US-ELI_LILLY_AND_COMPANY-US201006005984

PATIENT
  Sex: Male
  Weight: 104.31 kg

DRUGS (7)
  1. BYETTA [Suspect]
     Dosage: 5 UG, BID
     Route: 058
     Dates: start: 20090122
  2. FLEXERIL [Concomitant]
  3. METFORMIN HCL [Concomitant]
  4. SIMAVASTATIN [Concomitant]
  5. GLYBURIDE [Concomitant]
  6. LISINOPRIL [Concomitant]
  7. TRIAZOLAM [Concomitant]

REACTIONS (2)
  - INTENTIONAL DRUG MISUSE [None]
  - PANCREATITIS ACUTE [None]
